FAERS Safety Report 5745802-4 (Version None)
Quarter: 2008Q2

REPORT INFORMATION
  Report Type: 
  Country: None (occurrence: None)
  Receive Date: 20080520
  Receipt Date: 20060202
  Transmission Date: 20081010
  Serious: No
  Sender: FDA-Public Use
  Company Number: TPA2006A00200

PATIENT
  Age: 64 Year
  Sex: Female

DRUGS (1)
  1. ROZEREM [Suspect]
     Indication: SLEEP DISORDER
     Dosage: 8 MG, UNKNOWN, PER ORAL
     Route: 048

REACTIONS (1)
  - DRUG PRESCRIBING ERROR [None]
